FAERS Safety Report 5130060-4 (Version None)
Quarter: 2006Q4

REPORT INFORMATION
  Report Type: 
  Country: None (occurrence: None)
  Receive Date: 20061018
  Receipt Date: 20060731
  Transmission Date: 20070319
  Serious: Yes (Hospitalization)
  Sender: FDA-Public Use
  Company Number: BR-ABBOTT-06P-020-0341970-00

PATIENT
  Sex: Female

DRUGS (6)
  1. HUMIRA [Suspect]
     Indication: RHEUMATOID ARTHRITIS
     Route: 058
     Dates: start: 20060519, end: 20060701
  2. HUMIRA [Suspect]
     Route: 058
     Dates: start: 20060901
  3. METHOTREXATE [Concomitant]
     Indication: RHEUMATOID ARTHRITIS
     Route: 048
     Dates: end: 20060701
  4. METHOTREXATE [Concomitant]
     Route: 048
     Dates: start: 20060901
  5. LEFLUNOMIDE [Concomitant]
     Indication: RHEUMATOID ARTHRITIS
     Route: 048
     Dates: end: 20060701
  6. LEFLUNOMIDE [Concomitant]
     Dates: start: 20060901

REACTIONS (1)
  - HEPATITIS A [None]
